FAERS Safety Report 22394791 (Version 1)
Quarter: 2023Q2

REPORT INFORMATION
  Report Type: Spontaneous
  Country: US (occurrence: US)
  Receive Date: 20230601
  Receipt Date: 20230601
  Transmission Date: 20230722
  Serious: No
  Sender: FDA-Public Use
  Company Number: US-PFIZER INC-202300206859

PATIENT
  Age: 65 Year
  Sex: Female

DRUGS (1)
  1. IBRANCE [Suspect]
     Active Substance: PALBOCICLIB
     Dosage: 125 MG

REACTIONS (7)
  - Gait disturbance [Unknown]
  - Speech disorder [Unknown]
  - Hypersomnia [Unknown]
  - Fall [Unknown]
  - Dysstasia [Unknown]
  - Off label use [Unknown]
  - Wrong technique in product usage process [Unknown]
